FAERS Safety Report 10398238 (Version 7)
Quarter: 2014Q4

REPORT INFORMATION
  Report Type: Report from Study
  Country: GB (occurrence: GB)
  Receive Date: 20140821
  Receipt Date: 20141212
  Transmission Date: 20150528
  Serious: Yes (Other)
  Sender: FDA-Public Use
  Company Number: GB-ROCHE-1377611

PATIENT
  Sex: Female

DRUGS (1)
  1. HERCEPTIN [Suspect]
     Active Substance: TRASTUZUMAB
     Indication: NEOPLASM MALIGNANT
     Route: 058

REACTIONS (15)
  - Heart rate decreased [Unknown]
  - Musculoskeletal stiffness [Unknown]
  - Mouth ulceration [Recovering/Resolving]
  - Oral pain [Unknown]
  - Myalgia [Unknown]
  - Oropharyngeal pain [Unknown]
  - Joint stiffness [Not Recovered/Not Resolved]
  - Injection site discolouration [Unknown]
  - Muscle strain [Unknown]
  - Alopecia [Unknown]
  - Arthralgia [Unknown]
  - Hypoaesthesia [Unknown]
  - Onychoclasis [Unknown]
  - Injection site pruritus [Recovered/Resolved]
  - Injection site swelling [Recovered/Resolved]
